FAERS Safety Report 4980311-1 (Version None)
Quarter: 2006Q2

REPORT INFORMATION
  Report Type: 
  Country: None (occurrence: None)
  Receive Date: 20060424
  Receipt Date: 20060412
  Transmission Date: 20061013
  Serious: Yes (Death, Life-Threatening)
  Sender: FDA-Public Use
  Company Number: JP-JNJFOC-20051003138

PATIENT
  Age: 84 Year
  Sex: Female

DRUGS (2)
  1. TAVANIC [Suspect]
     Indication: BRONCHITIS
     Route: 048
     Dates: start: 20050829, end: 20050904
  2. OROKEN [Concomitant]
     Indication: BRONCHITIS

REACTIONS (2)
  - ISCHAEMIC STROKE [None]
  - TENDON RUPTURE [None]
